FAERS Safety Report 7229598-5 (Version None)
Quarter: 2011Q1

REPORT INFORMATION
  Report Type: 
  Country: None (occurrence: None)
  Receive Date: 20110117
  Receipt Date: 20110113
  Transmission Date: 20110831
  Serious: Yes (Other)
  Sender: FDA-Public Use
  Company Number: KR-JNJFOC-20110100034

PATIENT
  Sex: Female

DRUGS (3)
  1. MOTILIUM M [Concomitant]
     Indication: ANTIEMETIC SUPPORTIVE CARE
     Route: 048
  2. DURAGESIC-100 [Suspect]
     Indication: PAIN MANAGEMENT
     Dosage: ONE THIRD OF 12.5 UG/HR PATCH
     Route: 062
  3. DURAGESIC-100 [Suspect]
     Route: 062

REACTIONS (4)
  - DYSPNOEA [None]
  - APNOEA [None]
  - WRONG TECHNIQUE IN DRUG USAGE PROCESS [None]
  - PARAESTHESIA [None]
